FAERS Safety Report 8312651-2 (Version None)
Quarter: 2012Q2

REPORT INFORMATION
  Report Type: 
  Country: None (occurrence: None)
  Receive Date: 20120426
  Receipt Date: 20120417
  Transmission Date: 20120825
  Serious: Yes (Other)
  Sender: FDA-Public Use
  Company Number: DE-BRISTOL-MYERS SQUIBB COMPANY-16470676

PATIENT
  Age: 70 Year

DRUGS (2)
  1. HYDROXYUREA [Suspect]
     Indication: CHRONIC MYELOID LEUKAEMIA
     Dates: start: 20100101
  2. IMATINIB MESYLATE [Suspect]
     Dosage: JUL-2010: DOSE INCREASED TO 800 MG/DAY
     Dates: start: 20100101

REACTIONS (1)
  - PNEUMONIA PRIMARY ATYPICAL [None]
